FAERS Safety Report 24910487 (Version 2)
Quarter: 2025Q3

REPORT INFORMATION
  Report Type: Report from Study
  Country: US (occurrence: US)
  Receive Date: 20250131
  Receipt Date: 20250802
  Transmission Date: 20251021
  Serious: Yes (Other)
  Sender: ALEXION PHARMACEUTICALS
  Company Number: US-ASTRAZENECA-202501USA020976US

PATIENT
  Sex: Female

DRUGS (3)
  1. BENRALIZUMAB [Suspect]
     Active Substance: BENRALIZUMAB
     Indication: Asthma
     Dosage: 30 MILLIGRAM, Q8W
     Dates: start: 202210
  2. FIRAZYR [Concomitant]
     Active Substance: ICATIBANT ACETATE
     Indication: Urinary retention
     Route: 065
  3. TAKHZYRO [Concomitant]
     Active Substance: LANADELUMAB-FLYO
     Route: 065

REACTIONS (4)
  - Nephrolithiasis [Unknown]
  - Urinary retention [Unknown]
  - Bladder hypertrophy [Unknown]
  - Abdominal distension [Unknown]
